FAERS Safety Report 8185330-2 (Version None)
Quarter: 2012Q1

REPORT INFORMATION
  Report Type: 
  Country: None (occurrence: None)
  Receive Date: 20120305
  Receipt Date: 20120228
  Transmission Date: 20120608
  Serious: Yes (Other)
  Sender: FDA-Public Use
  Company Number: PHHY2012AT017680

PATIENT
  Age: 49 Year
  Sex: Female

DRUGS (1)
  1. ZOMETA [Suspect]
     Indication: METASTASES TO BONE
     Dosage: 4 MG EVERY 4TH WEEK
     Route: 065
     Dates: start: 20100301, end: 20111001

REACTIONS (1)
  - OSTEONECROSIS OF JAW [None]
